FAERS Safety Report 10619529 (Version 5)
Quarter: 2015Q1

REPORT INFORMATION
  Report Type: Spontaneous
  Country: JP (occurrence: JP)
  Receive Date: 20141202
  Receipt Date: 20150223
  Transmission Date: 20150720
  Serious: Yes (Hospitalization)
  Sender: FDA-Public Use
  Company Number: JP-PFIZER INC-2014325260

PATIENT
  Age: 79 Year
  Sex: Male
  Weight: 55 kg

DRUGS (16)
  1. LOXOPROFEN SODIUM [Concomitant]
     Active Substance: LOXOPROFEN SODIUM
     Indication: POST HERPETIC NEURALGIA
     Dosage: 60 MG, 1X/DAY
     Route: 048
     Dates: start: 20141112, end: 20141119
  2. TAKEPRON [Concomitant]
     Active Substance: LANSOPRAZOLE
     Dosage: UNK
  3. LYRICA [Suspect]
     Active Substance: PREGABALIN
     Dosage: 50 MG, 2X/DAY
     Route: 048
     Dates: start: 20141117, end: 20141121
  4. BASEN OD [Concomitant]
     Active Substance: VOGLIBOSE
     Dosage: UNK
  5. LYRICA [Suspect]
     Active Substance: PREGABALIN
     Indication: POST HERPETIC NEURALGIA
     Dosage: 25 MG, 1X/DAY
     Route: 048
     Dates: start: 20141111, end: 20141112
  6. ACICLOVIN NICHIIKO [Suspect]
     Active Substance: ACYCLOVIR SODIUM
     Indication: HERPES ZOSTER
     Dosage: 250 MG, 3X/DAY
     Route: 042
     Dates: start: 20141110, end: 20141116
  7. TRAZENTA [Concomitant]
     Active Substance: LINAGLIPTIN
     Dosage: UNK
  8. MAGMITT [Concomitant]
     Active Substance: MAGNESIUM OXIDE
     Dosage: UNK
  9. LOXOPROFEN SODIUM [Concomitant]
     Active Substance: LOXOPROFEN SODIUM
     Dosage: 60 MG, 2X/DAY
     Route: 048
     Dates: start: 20141119, end: 20141121
  10. METHYCOBAL [Concomitant]
     Active Substance: METHYLCOBALAMIN
     Route: 048
  11. CALONAL [Suspect]
     Active Substance: ACETAMINOPHEN
     Indication: POST HERPETIC NEURALGIA
     Dosage: 400 MG, 3X/DAY
     Route: 048
     Dates: start: 20141110, end: 20141111
  12. CALONAL [Suspect]
     Active Substance: ACETAMINOPHEN
     Dosage: 400 MG, 4X/DAY
     Route: 048
     Dates: start: 20141111, end: 20141117
  13. BAYASPIRIN [Concomitant]
     Active Substance: ASPIRIN
     Dosage: UNK
  14. AMARYL [Concomitant]
     Active Substance: GLIMEPIRIDE
     Dosage: UNK
  15. LYRICA [Suspect]
     Active Substance: PREGABALIN
     Dosage: 50 MG, 1X/DAY
     Route: 048
     Dates: start: 20141112, end: 20141117
  16. FAMVIR [Concomitant]
     Active Substance: FAMCICLOVIR

REACTIONS (1)
  - Drug-induced liver injury [Recovered/Resolved]

NARRATIVE: CASE EVENT DATE: 20141113
